FAERS Safety Report 7646838-9 (Version None)
Quarter: 2011Q3

REPORT INFORMATION
  Report Type: 
  Country: None (occurrence: None)
  Receive Date: 20110729
  Receipt Date: 20110729
  Transmission Date: 20111222
  Serious: Yes (Other)
  Sender: FDA-Public Use
  Company Number: None

PATIENT
  Sex: Female
  Weight: 52.1637 kg

DRUGS (1)
  1. NEXIUM [Suspect]
     Indication: ABDOMINAL DISCOMFORT
     Dosage: 40MG 1 PER DAY AM ORAL
     Route: 048
     Dates: start: 20100814

REACTIONS (6)
  - ABDOMINAL PAIN UPPER [None]
  - WEIGHT DECREASED [None]
  - DUODENITIS HAEMORRHAGIC [None]
  - GASTRITIS [None]
  - DUODENITIS [None]
  - GASTRITIS HAEMORRHAGIC [None]
